FAERS Safety Report 14383408 (Version 2)
Quarter: 2018Q2

REPORT INFORMATION
  Report Type: Spontaneous
  Country: US (occurrence: US)
  Receive Date: 20180115
  Receipt Date: 20180419
  Transmission Date: 20180711
  Serious: No
  Sender: FDA-Public Use
  Company Number: US-ASTRAZENECA-2018SE01905

PATIENT
  Age: 21285 Day
  Sex: Female
  Weight: 68 kg

DRUGS (2)
  1. SYMBICORT [Suspect]
     Active Substance: BUDESONIDE\FORMOTEROL FUMARATE DIHYDRATE
     Indication: ASTHMA EXERCISE INDUCED
     Dosage: SYMBICORT AS NEEDED, EVEN THOUGH IT IS PRESCRIBED 2 PUFFS TWICE DAILY
     Route: 055
  2. VENTOLIN HFA [Concomitant]
     Active Substance: ALBUTEROL SULFATE
     Indication: RESPIRATORY THERAPY
     Dosage: AS REQUIRED

REACTIONS (8)
  - Product use issue [Unknown]
  - Off label use [Unknown]
  - Malaise [Unknown]
  - Expired product administered [Unknown]
  - Intentional product misuse [Unknown]
  - Device issue [Unknown]
  - Product label issue [Unknown]
  - Drug dispensing error [Unknown]

NARRATIVE: CASE EVENT DATE: 20170727
